FAERS Safety Report 24372162 (Version 1)
Quarter: 2024Q3

REPORT INFORMATION
  Report Type: Spontaneous
  Country: JP (occurrence: JP)
  Receive Date: 20240927
  Receipt Date: 20240927
  Transmission Date: 20241016
  Serious: Yes (Other)
  Sender: MYLAN
  Company Number: JP-MYE-2024M1084916AA

PATIENT
  Age: 42 Year
  Sex: Female

DRUGS (4)
  1. ERYTHROCIN STEARATE [Interacting]
     Active Substance: ERYTHROMYCIN STEARATE
     Indication: Pneumonia
     Dosage: 200 MILLIGRAM, BID
     Route: 048
     Dates: start: 2018, end: 20240911
  2. CLOZAPINE [Interacting]
     Active Substance: CLOZAPINE
     Indication: Schizophrenia
     Dosage: UNK
     Route: 048
  3. DAYVIGO [Interacting]
     Active Substance: LEMBOREXANT
     Indication: Schizophrenia
     Dosage: 5 MILLIGRAM
     Route: 048
     Dates: end: 20240904
  4. ABILIFY [Concomitant]
     Active Substance: ARIPIPRAZOLE
     Indication: Schizophrenia
     Dosage: UNK
     Route: 048

REACTIONS (5)
  - Hallucination [Unknown]
  - Hallucination, auditory [Unknown]
  - Somnolence [Unknown]
  - Drug interaction [Unknown]
  - Nausea [Unknown]

NARRATIVE: CASE EVENT DATE: 20240903
